FAERS Safety Report 17283518 (Version 1)
Quarter: 2019Q4

REPORT INFORMATION
  Report Type: Spontaneous
  Country: US (occurrence: US)
  Receive Date: 20191211
  Receipt Date: 20191211
  Transmission Date: 20200122
  Serious: Yes (Life-Threatening, Hospitalization)
  Sender: FDA-Public Use
  Company Number: None

PATIENT
  Age: 3 Year
  Sex: Female

DRUGS (1)
  1. 4 KIDS COMPLETE COLD AND MUCUS [Suspect]
     Active Substance: HOMEOPATHICS
     Indication: RESPIRATORY FAILURE
     Dosage: ?          OTHER DOSE:4 FLUID OUNCES BOT;?

REACTIONS (4)
  - Vomiting [None]
  - Unresponsive to stimuli [None]
  - Carbon dioxide increased [None]
  - Respiratory failure [None]

NARRATIVE: CASE EVENT DATE: 20180903
